FAERS Safety Report 16444989 (Version 1)
Quarter: 2019Q2

REPORT INFORMATION
  Report Type: Spontaneous
  Country: US (occurrence: US)
  Receive Date: 20190618
  Receipt Date: 20190618
  Transmission Date: 20190711
  Serious: No
  Sender: FDA-Public Use
  Company Number: US-TEVA-2019-US-1061388

PATIENT
  Age: 34 Year
  Sex: Female

DRUGS (16)
  1. LABETALOL [Suspect]
     Active Substance: LABETALOL\LABETALOL HYDROCHLORIDE
     Indication: BLOOD PRESSURE FLUCTUATION
     Dosage: 100 MILLIGRAM DAILY;
     Route: 048
  2. FENTANYL. [Suspect]
     Active Substance: FENTANYL
     Dosage: DOSE: 50-75UG
     Route: 040
  3. REMIFENTANIL [Suspect]
     Active Substance: REMIFENTANIL
     Indication: GENERAL ANAESTHESIA
     Dosage: DOSE: 0.2-0.4UG/KG/MIN
     Route: 041
  4. PHENOXYBENZAMINE [Suspect]
     Active Substance: PHENOXYBENZAMINE
     Route: 048
  5. PHENOXYBENZAMINE [Suspect]
     Active Substance: PHENOXYBENZAMINE
     Dosage: 20 MILLIGRAM DAILY; ON POST-OPERATIVE DAY 1
     Route: 048
  6. PROPOFOL. [Suspect]
     Active Substance: PROPOFOL
     Indication: INDUCTION OF ANAESTHESIA
     Route: 042
  7. FENTANYL. [Suspect]
     Active Substance: FENTANYL
     Indication: INDUCTION OF ANAESTHESIA
     Route: 042
  8. PROPOFOL. [Suspect]
     Active Substance: PROPOFOL
     Route: 042
  9. SUCCINYLCHOLINE [Suspect]
     Active Substance: SUCCINYLCHOLINE
     Indication: INDUCTION OF ANAESTHESIA
     Route: 042
  10. PHENYLEPHRINE [Suspect]
     Active Substance: PHENYLEPHRINE\PHENYLEPHRINE HYDROCHLORIDE
     Indication: HAEMODYNAMIC INSTABILITY
     Dosage: DOSE: LESS THAN OR EQUAL TO 0.5UG/KG/MIN
     Route: 041
  11. DEXMEDETOMIDINE. [Suspect]
     Active Substance: DEXMEDETOMIDINE
     Dosage: DOSE: 0.5UG/KG/H
     Route: 050
  12. PHENOXYBENZAMINE [Suspect]
     Active Substance: PHENOXYBENZAMINE
     Indication: BLOOD PRESSURE FLUCTUATION
     Dosage: 60 MILLIGRAM DAILY; 2 WEEKS PRIOR TO THE ADRENALECTOMY
     Route: 048
  13. NICARDIPINE [Suspect]
     Active Substance: NICARDIPINE
     Indication: HAEMODYNAMIC INSTABILITY
     Route: 050
  14. DEXMEDETOMIDINE. [Suspect]
     Active Substance: DEXMEDETOMIDINE
     Indication: ANAESTHESIA
     Dosage: AT A LOADING DOSE OF 0.5 MICROG/KG OVER 15 MINUTES
     Route: 065
  15. ISOFLURANE. [Suspect]
     Active Substance: ISOFLURANE
     Indication: GENERAL ANAESTHESIA
     Dosage: END TIDAL CONCENTRATION, 0.5-0.9 VOL %
     Route: 065
  16. ROCURONIUM [Suspect]
     Active Substance: ROCURONIUM BROMIDE
     Indication: INDUCTION OF ANAESTHESIA
     Route: 042

REACTIONS (5)
  - Tachycardia [Unknown]
  - Orthostatic intolerance [Unknown]
  - Dizziness [Unknown]
  - Maternal exposure during pregnancy [Unknown]
  - Normal newborn [Unknown]
